FAERS Safety Report 12962388 (Version 1)
Quarter: 2016Q4

REPORT INFORMATION
  Report Type: Spontaneous
  Country: US (occurrence: US)
  Receive Date: 20161121
  Receipt Date: 20161121
  Transmission Date: 20170207
  Serious: No
  Sender: FDA-Public Use
  Company Number: US-ALLERGAN-1663049US

PATIENT
  Age: 69 Year
  Sex: Male
  Weight: 88.44 kg

DRUGS (1)
  1. COMBIGAN [Suspect]
     Active Substance: BRIMONIDINE TARTRATE\TIMOLOL MALEATE
     Indication: INTRAOCULAR PRESSURE DECREASED
     Dosage: 2 GTT, BID
     Route: 047

REACTIONS (2)
  - Medication residue present [Not Recovered/Not Resolved]
  - Eye pruritus [Not Recovered/Not Resolved]
